FAERS Safety Report 15503718 (Version 1)
Quarter: 2018Q4

REPORT INFORMATION
  Report Type: Spontaneous
  Country: US (occurrence: US)
  Receive Date: 20181009
  Receipt Date: 20181009
  Transmission Date: 20190205
  Serious: Yes (Other)
  Sender: FDA-Public Use
  Company Number: None

PATIENT
  Age: 61 Year
  Sex: Female

DRUGS (14)
  1. MYCOPHENOLATE [Suspect]
     Active Substance: MYCOPHENOLIC ACID
     Indication: RENAL TRANSPLANT
     Route: 048
     Dates: start: 20150702
  2. MAGN OXIDE [Concomitant]
  3. CALC 600+D 600-800 [Concomitant]
  4. DOCUSIL 100MG [Concomitant]
  5. AMLODIPINE [Concomitant]
     Active Substance: AMLODIPINE BESYLATE
  6. RANITIDINE. [Concomitant]
     Active Substance: RANITIDINE
  7. ASPIRIN 81MG [Concomitant]
     Active Substance: ASPIRIN
  8. FOLIC ACID 1MG [Concomitant]
  9. TRAZODONE [Concomitant]
     Active Substance: TRAZODONE HYDROCHLORIDE
  10. FUROSEMIDE 40MG [Concomitant]
     Active Substance: FUROSEMIDE
  11. METOPROL TAR 50MG [Concomitant]
     Active Substance: METOPROLOL TARTRATE
  12. OMEPRAZOLE 20MG [Concomitant]
     Active Substance: OMEPRAZOLE
  13. GENGRAF [Suspect]
     Active Substance: CYCLOSPORINE
     Indication: RENAL TRANSPLANT
     Route: 048
     Dates: start: 20150702
  14. PREDNISONE 2.5MG [Concomitant]

REACTIONS (1)
  - Dehydration [None]

NARRATIVE: CASE EVENT DATE: 20180926
